FAERS Safety Report 10329907 (Version 1)
Quarter: 2014Q3

REPORT INFORMATION
  Report Type: Spontaneous
  Country: US (occurrence: US)
  Receive Date: 20140721
  Receipt Date: 20140721
  Transmission Date: 20150326
  Serious: Yes (Other)
  Sender: FDA-Public Use
  Company Number: US-GLAXOSMITHKLINE-A1081244A

PATIENT
  Age: 41 Year
  Sex: Female

DRUGS (3)
  1. SYNTHROID [Concomitant]
     Active Substance: LEVOTHYROXINE SODIUM
  2. VALTREX [Suspect]
     Active Substance: VALACYCLOVIR HYDROCHLORIDE
     Indication: GENITAL HERPES
     Dosage: 500MG TWICE PER DAY
     Route: 048
     Dates: end: 201308
  3. VALACYCLOVIR [Suspect]
     Active Substance: VALACYCLOVIR HYDROCHLORIDE
     Indication: GENITAL HERPES
     Dosage: 500MG TWICE PER DAY
     Route: 048
     Dates: end: 201307

REACTIONS (10)
  - Mastectomy [Not Recovered/Not Resolved]
  - Dizziness [Recovered/Resolved]
  - Headache [Recovered/Resolved]
  - Nausea [Recovered/Resolved]
  - Thyroid neoplasm [Not Recovered/Not Resolved]
  - Neoplasm [Not Recovered/Not Resolved]
  - Hodgkin^s disease [Not Recovered/Not Resolved]
  - Pancreatic mass [Not Recovered/Not Resolved]
  - Drug ineffective [Recovered/Resolved]
  - Intestinal mass [Not Recovered/Not Resolved]
